FAERS Safety Report 10716193 (Version 1)
Quarter: 2015Q1

REPORT INFORMATION
  Report Type: Spontaneous
  Country: US (occurrence: None)
  Receive Date: 20150115
  Receipt Date: 20150115
  Transmission Date: 20150721
  Serious: Yes (Hospitalization)
  Sender: FDA-Public Use
  Company Number: None

PATIENT
  Age: 28 Year
  Sex: Male
  Weight: 85.5 kg

DRUGS (1)
  1. CEFTRIAXONE. [Suspect]
     Active Substance: CEFTRIAXONE
     Route: 030
     Dates: start: 20141114, end: 20141114

REACTIONS (7)
  - Vomiting [None]
  - Hyperhidrosis [None]
  - Rash generalised [None]
  - Rash erythematous [None]
  - Nausea [None]
  - Anaphylactic reaction [None]
  - Rash pruritic [None]

NARRATIVE: CASE EVENT DATE: 20141114
